FAERS Safety Report 4433105-X (Version None)
Quarter: 2004Q3

REPORT INFORMATION
  Report Type: 
  Country: None (occurrence: None)
  Receive Date: 20040823
  Receipt Date: 20040806
  Transmission Date: 20050211
  Serious: Yes (Life-Threatening, Hospitalization)
  Sender: FDA-Public Use
  Company Number: 2004-BP-05014BP

PATIENT
  Age: 59 Year
  Sex: Male

DRUGS (10)
  1. MIRAPEX [Suspect]
     Indication: PARKINSON'S DISEASE
     Dosage: SEE IMAGE, PO
     Route: 048
     Dates: start: 20040601, end: 20040619
  2. MIRAPEX [Suspect]
     Indication: PARKINSON'S DISEASE
     Dosage: SEE IMAGE, PO
     Route: 048
     Dates: start: 20040601
  3. MIRAPEX [Suspect]
     Indication: PARKINSON'S DISEASE
     Dosage: SEE IMAGE, PO
     Route: 048
     Dates: start: 20040601
  4. MIRAPEX [Suspect]
     Indication: PARKINSON'S DISEASE
     Dosage: SEE IMAGE, PO
     Route: 048
     Dates: start: 20040603
  5. AMANTADINE (AMANTADINE) [Concomitant]
  6. SINEMET [Concomitant]
  7. VERAPAMIL [Concomitant]
  8. SINEMET [Concomitant]
  9. FLOMAX [Concomitant]
  10. K+ (POTASSIUM) [Concomitant]

REACTIONS (5)
  - AGITATION [None]
  - CONFUSIONAL STATE [None]
  - DYSPNOEA [None]
  - RESPIRATORY ARREST [None]
  - RESPIRATORY FAILURE [None]
